FAERS Safety Report 7632944-1 (Version None)
Quarter: 2011Q3

REPORT INFORMATION
  Report Type: 
  Country: None (occurrence: None)
  Receive Date: 20110725
  Receipt Date: 20110720
  Transmission Date: 20111222
  Serious: Yes (Other)
  Sender: FDA-Public Use
  Company Number: US-BAYER-2011-063753

PATIENT
  Age: 35 Year
  Sex: Female

DRUGS (1)
  1. YASMIN [Suspect]
     Dosage: UNK
     Dates: start: 20010101, end: 20020101

REACTIONS (3)
  - EMOTIONAL DISTRESS [None]
  - PULMONARY EMBOLISM [None]
  - INJURY [None]
